FAERS Safety Report 7375903-9 (Version None)
Quarter: 2011Q1

REPORT INFORMATION
  Report Type: 
  Country: None (occurrence: None)
  Receive Date: 20110325
  Receipt Date: 20110317
  Transmission Date: 20110831
  Serious: Yes (Hospitalization)
  Sender: FDA-Public Use
  Company Number: B0706526A

PATIENT
  Sex: Female

DRUGS (12)
  1. CLAMOXYL [Suspect]
     Indication: ERYSIPELAS
     Dosage: 1G SINGLE DOSE
     Route: 048
     Dates: start: 20110113, end: 20110113
  2. SPASFON LYOC [Concomitant]
     Route: 065
  3. PARACETAMOL [Concomitant]
     Route: 065
  4. CONTRAMAL [Concomitant]
     Route: 065
     Dates: end: 20110109
  5. TEMESTA [Concomitant]
     Route: 065
  6. NEXIUM [Concomitant]
     Route: 065
  7. LOVENOX [Concomitant]
     Dosage: 40UNIT UNKNOWN
     Route: 065
  8. IMOVANE [Concomitant]
     Route: 065
     Dates: start: 20110108
  9. ACETAMINOPHEN AND TRAMADOL HCL [Concomitant]
     Route: 065
     Dates: start: 20110109
  10. SEROPLEX [Concomitant]
     Route: 065
  11. NOROXIN [Concomitant]
     Indication: URINARY TRACT INFECTION
     Dosage: 4004UNIT UNKNOWN
     Route: 065
     Dates: start: 20110110
  12. NOCTAMIDE [Concomitant]
     Route: 065
     Dates: end: 20110107

REACTIONS (4)
  - PYREXIA [None]
  - HYPOTENSION [None]
  - ANAPHYLACTIC SHOCK [None]
  - ERYTHEMA [None]
